FAERS Safety Report 11656215 (Version 1)
Quarter: 2015Q4

REPORT INFORMATION
  Report Type: Spontaneous
  Country: KR (occurrence: KR)
  Receive Date: 20151023
  Receipt Date: 20151023
  Transmission Date: 20160304
  Serious: Yes (Other)
  Sender: FDA-Public Use
  Company Number: KR-FRESENIUS KABI-FK201505224

PATIENT
  Age: 35 Year
  Sex: Female

DRUGS (2)
  1. CISPLATIN (MANUFACTURER UNKNOWN) [Suspect]
     Active Substance: CISPLATIN
     Indication: ADENOID CYSTIC CARCINOMA
     Route: 013
  2. DOXORUBICIN (MANUFACTURER UNKNOWN) [Suspect]
     Active Substance: DOXORUBICIN
     Indication: ADENOID CYSTIC CARCINOMA
     Route: 042

REACTIONS (8)
  - VIIth nerve paralysis [Not Recovered/Not Resolved]
  - Necrotising retinitis [Unknown]
  - Eyelid ptosis [Unknown]
  - Neutropenia [Unknown]
  - Alopecia [Unknown]
  - Mouth ulceration [Unknown]
  - Gingivitis [Unknown]
  - Asthenia [Unknown]
